FAERS Safety Report 12588080 (Version 1)
Quarter: 2016Q3

REPORT INFORMATION
  Report Type: Spontaneous
  Country: US (occurrence: US)
  Receive Date: 20160725
  Receipt Date: 20160725
  Transmission Date: 20161109
  Serious: Yes (Hospitalization, Other)
  Sender: FDA-Public Use
  Company Number: US-SMITH AND NEPHEW, INC-2016SMT00596

PATIENT
  Age: 69 Year
  Sex: Female
  Weight: 88.89 kg

DRUGS (6)
  1. POTASSIUM [Concomitant]
     Active Substance: POTASSIUM
  2. SOTALOL. [Concomitant]
     Active Substance: SOTALOL
  3. COUMADIN [Concomitant]
     Active Substance: WARFARIN SODIUM
  4. METFORMIN [Concomitant]
     Active Substance: METFORMIN HYDROCHLORIDE
  5. REGRANEX [Suspect]
     Active Substance: BECAPLERMIN
     Indication: DIABETIC ULCER
     Dosage: UNK UNK, 1X/DAY
     Route: 061
     Dates: start: 201604, end: 2016
  6. METOPROLOL. [Concomitant]
     Active Substance: METOPROLOL

REACTIONS (3)
  - Foot fracture [Recovering/Resolving]
  - Sepsis [Recovering/Resolving]
  - Toe amputation [Recovered/Resolved]

NARRATIVE: CASE EVENT DATE: 20160502
